FAERS Safety Report 5926073-2 (Version None)
Quarter: 2008Q4

REPORT INFORMATION
  Report Type: 
  Country: None (occurrence: None)
  Receive Date: 20081016
  Receipt Date: 20080930
  Transmission Date: 20090506
  Serious: Yes (Hospitalization)
  Sender: FDA-Public Use
  Company Number: 8036882

PATIENT
  Age: 17 Year
  Sex: Female
  Weight: 55 kg

DRUGS (1)
  1. THEOPHYLLINE [Suspect]
     Dosage: 250 MG; PO
     Route: 048

REACTIONS (18)
  - BLOOD CREATINE PHOSPHOKINASE INCREASED [None]
  - DRUG TOXICITY [None]
  - ELECTROCARDIOGRAM QT PROLONGED [None]
  - EXTRASYSTOLES [None]
  - HYPERGLYCAEMIA [None]
  - HYPERVENTILATION [None]
  - HYPOKALAEMIA [None]
  - HYPONATRAEMIA [None]
  - INTENTIONAL DRUG MISUSE [None]
  - METABOLIC ALKALOSIS [None]
  - MYOGLOBIN BLOOD INCREASED [None]
  - NAUSEA [None]
  - NO THERAPEUTIC RESPONSE [None]
  - OVERDOSE [None]
  - PALPITATIONS [None]
  - SUICIDE ATTEMPT [None]
  - VENTRICULAR ARRHYTHMIA [None]
  - VOMITING [None]
